FAERS Safety Report 5562644-3 (Version None)
Quarter: 2007Q4

REPORT INFORMATION
  Report Type: 
  Country: None (occurrence: None)
  Receive Date: 20071217
  Receipt Date: 20071211
  Transmission Date: 20080405
  Serious: Yes (Other)
  Sender: FDA-Public Use
  Company Number: FR-BRISTOL-MYERS SQUIBB COMPANY-14011688

PATIENT
  Age: 73 Year
  Sex: Male

DRUGS (5)
  1. ELISOR TABS [Suspect]
     Route: 048
  2. PRAVASTATIN [Suspect]
     Route: 048
  3. TAHOR [Suspect]
     Dosage: FILM-COATED TABLETS.
     Route: 048
     Dates: start: 19950101
  4. FENOFIBRATE [Suspect]
     Route: 048
  5. ZOCOR [Suspect]
     Dosage: TABLETS.
     Route: 048

REACTIONS (2)
  - MUSCLE SPASMS [None]
  - TENDONITIS [None]
